FAERS Safety Report 15415087 (Version 4)
Quarter: 2019Q1

REPORT INFORMATION
  Report Type: Report from Study
  Country: US (occurrence: US)
  Receive Date: 20180921
  Receipt Date: 20190220
  Transmission Date: 20190417
  Serious: No
  Sender: FDA-Public Use
  Company Number: PHEH2018US038779

PATIENT
  Sex: Male

DRUGS (2)
  1. ENTRESTO [Suspect]
     Active Substance: SACUBITRIL\VALSARTAN
     Indication: CARDIAC FAILURE CONGESTIVE
     Dosage: UNK
     Route: 048
  2. ENTRESTO [Suspect]
     Active Substance: SACUBITRIL\VALSARTAN
     Dosage: 0.5 DF (CUT IN HALF), UNK
     Route: 065

REACTIONS (10)
  - Peripheral swelling [Unknown]
  - Eye irritation [Unknown]
  - Vision blurred [Unknown]
  - Cough [Unknown]
  - Fluid retention [Unknown]
  - Product prescribing error [Unknown]
  - Memory impairment [Unknown]
  - Fatigue [Unknown]
  - Wrong technique in product usage process [Unknown]
  - Joint swelling [Unknown]
